FAERS Safety Report 8182303-0 (Version None)
Quarter: 2012Q1

REPORT INFORMATION
  Report Type: 
  Country: None (occurrence: None)
  Receive Date: 20120302
  Receipt Date: 20120227
  Transmission Date: 20120608
  Serious: Yes (Other)
  Sender: FDA-Public Use
  Company Number: PHHY2012BR017708

PATIENT
  Sex: Female

DRUGS (2)
  1. DIOVAN HCT [Suspect]
     Dosage: 160/12.5 MG
  2. DIOVAN HCT [Suspect]
     Dosage: 2 DF,(160/12.5 MG )

REACTIONS (2)
  - DEMENTIA ALZHEIMER'S TYPE [None]
  - BLOOD PRESSURE FLUCTUATION [None]
